FAERS Safety Report 7633074-5 (Version None)
Quarter: 2011Q3

REPORT INFORMATION
  Report Type: 
  Country: None (occurrence: None)
  Receive Date: 20110725
  Receipt Date: 20110721
  Transmission Date: 20111222
  Serious: Yes (Death)
  Sender: FDA-Public Use
  Company Number: PHFR2011GB01399

PATIENT
  Sex: Male

DRUGS (7)
  1. ALBUTEROL [Concomitant]
     Indication: ASTHMA
     Dates: start: 19990101
  2. LANSOPRAZOLE [Concomitant]
     Indication: GASTROOESOPHAGEAL REFLUX DISEASE
     Dosage: 15 MG, UNK
     Route: 048
     Dates: start: 19990101
  3. FLUOXETINE [Concomitant]
     Indication: DEPRESSION
     Dosage: 40 MG, UNK
     Route: 048
     Dates: start: 19990101
  4. CLOZAPINE [Suspect]
     Indication: SCHIZOPHRENIA
     Dosage: UNK
     Route: 048
     Dates: start: 19910517
  5. CLOZAPINE [Suspect]
     Dosage: UNK
     Route: 048
     Dates: start: 20040101
  6. CLONAZEPAM [Concomitant]
     Indication: AGITATION
     Dosage: 0.5 MG, TID
     Route: 048
     Dates: start: 20040101
  7. CHLORPROMAZINE [Concomitant]
     Dosage: 100 MG, UNK
     Route: 048
     Dates: start: 19990101

REACTIONS (4)
  - GENERAL PHYSICAL HEALTH DETERIORATION [None]
  - DEEP VEIN THROMBOSIS [None]
  - PULMONARY EMBOLISM [None]
  - CARDIAC ARREST [None]
